FAERS Safety Report 18383420 (Version 1)
Quarter: 2020Q4

REPORT INFORMATION
  Report Type: Spontaneous
  Country: GB (occurrence: GB)
  Receive Date: 20201014
  Receipt Date: 20201014
  Transmission Date: 20210114
  Serious: Yes (Other)
  Sender: FDA-Public Use
  Company Number: GB-JNJFOC-20201014189

PATIENT
  Age: 37 Year
  Sex: Female
  Weight: 95.7 kg

DRUGS (2)
  1. SALAMOL                            /00139501/ [Concomitant]
     Indication: PRODUCT USED FOR UNKNOWN INDICATION
     Route: 065
  2. VERMOX [Suspect]
     Active Substance: MEBENDAZOLE
     Indication: TINEA INFECTION
     Route: 048
     Dates: start: 20200827, end: 20200827

REACTIONS (4)
  - Dyspnoea [Unknown]
  - Off label use [Unknown]
  - Abdominal pain [Recovered/Resolved]
  - Product use in unapproved indication [Unknown]

NARRATIVE: CASE EVENT DATE: 20200828
